FAERS Safety Report 8883486 (Version 1)
Quarter: 2012Q4

REPORT INFORMATION
  Report Type: 
  Country: US (occurrence: US)
  Receive Date: 20121102
  Receipt Date: 20121102
  Transmission Date: 20130627
  Serious: Yes (Death)
  Sender: FDA-Public Use
  Company Number: US-JNJFOC-20121015607

PATIENT

DRUGS (1)
  1. RISPERIDONE [Suspect]
     Indication: DEMENTIA ALZHEIMER^S TYPE
     Dosage: at a dose of 0.25 to 0.5 mg daily
     Route: 048

REACTIONS (2)
  - Death [Fatal]
  - Drug ineffective [Unknown]
